FAERS Safety Report 13367161 (Version 1)
Quarter: 2017Q1

REPORT INFORMATION
  Report Type: Spontaneous
  Country: US (occurrence: US)
  Receive Date: 20170323
  Receipt Date: 20170323
  Transmission Date: 20170429
  Serious: Yes (Hospitalization)
  Sender: FDA-Public Use
  Company Number: None

PATIENT
  Age: 66 Year
  Sex: Male
  Weight: 68 kg

DRUGS (3)
  1. LAMOTRIGINE. [Suspect]
     Active Substance: LAMOTRIGINE
     Indication: BIPOLAR DISORDER
     Route: 048
     Dates: start: 20170120, end: 20170319
  2. RISPERIDONE. [Concomitant]
     Active Substance: RISPERIDONE
  3. BUPROPION. [Concomitant]
     Active Substance: BUPROPION

REACTIONS (7)
  - Rash erythematous [None]
  - Pallor [None]
  - Rash maculo-papular [None]
  - Rash pruritic [None]
  - Drug reaction with eosinophilia and systemic symptoms [None]
  - Rash generalised [None]
  - Stevens-Johnson syndrome [None]

NARRATIVE: CASE EVENT DATE: 20170322
